FAERS Safety Report 16623707 (Version 5)
Quarter: 2020Q4

REPORT INFORMATION
  Report Type: Spontaneous
  Country: US (occurrence: US)
  Receive Date: 20190724
  Receipt Date: 20201112
  Transmission Date: 20210113
  Serious: Yes (Other)
  Sender: FDA-Public Use
  Company Number: US-GILEAD-2019-0419555

PATIENT
  Age: 56 Year
  Sex: Male
  Weight: 57.2 kg

DRUGS (19)
  1. FLOMAX [Concomitant]
     Active Substance: TAMSULOSIN HYDROCHLORIDE
  2. PLAVIX [Concomitant]
     Active Substance: CLOPIDOGREL BISULFATE
  3. ATRIPLA [Suspect]
     Active Substance: EFAVIRENZ\EMTRICITABINE\TENOFOVIR DISOPROXIL FUMARATE
     Indication: HIV INFECTION
     Dosage: UNK
     Route: 048
     Dates: start: 2006, end: 2018
  4. DESCOVY [Concomitant]
     Active Substance: EMTRICITABINE\TENOFOVIR ALAFENAMIDE FUMARATE
     Indication: HIV INFECTION
  5. ASPIRIN COMPOUND [ACETYLSALICYLIC ACID;ASCORBIC ACID] [Concomitant]
  6. LIPITOR [Concomitant]
     Active Substance: ATORVASTATIN CALCIUM
  7. FLUTICASONE. [Concomitant]
     Active Substance: FLUTICASONE
  8. ATRIPLA [Suspect]
     Active Substance: EFAVIRENZ\EMTRICITABINE\TENOFOVIR DISOPROXIL FUMARATE
     Dosage: UNK
     Route: 048
     Dates: start: 2012, end: 2018
  9. ZIAGEN [Concomitant]
     Active Substance: ABACAVIR SULFATE
  10. MITOMYCIN. [Concomitant]
     Active Substance: MITOMYCIN
  11. VIDEX [Concomitant]
     Active Substance: DIDANOSINE
  12. ACYCLOVIR [ACICLOVIR] [Concomitant]
     Active Substance: ACYCLOVIR
  13. FISH OIL [Concomitant]
     Active Substance: FISH OIL
  14. XANAX [Concomitant]
     Active Substance: ALPRAZOLAM
  15. OMEPRAZOLE. [Concomitant]
     Active Substance: OMEPRAZOLE
  16. BACTRIM [Concomitant]
     Active Substance: SULFAMETHOXAZOLE\TRIMETHOPRIM
  17. EPIVIR [Concomitant]
     Active Substance: LAMIVUDINE
  18. ATENOLOL. [Concomitant]
     Active Substance: ATENOLOL
  19. SUSTIVA [Concomitant]
     Active Substance: EFAVIRENZ

REACTIONS (16)
  - Emotional distress [Not Recovered/Not Resolved]
  - Anhedonia [Not Recovered/Not Resolved]
  - Economic problem [Not Recovered/Not Resolved]
  - Intervertebral disc degeneration [Unknown]
  - Pain [Not Recovered/Not Resolved]
  - Nephropathy [Unknown]
  - Glomerulonephritis [Unknown]
  - Condition aggravated [Unknown]
  - Renal failure [Unknown]
  - Osteoarthritis [Unknown]
  - Renal cyst [Unknown]
  - Haematuria [Unknown]
  - Chronic kidney disease [Unknown]
  - Acute kidney injury [Unknown]
  - Anxiety [Not Recovered/Not Resolved]
  - Proteinuria [Unknown]

NARRATIVE: CASE EVENT DATE: 20120615
